FAERS Safety Report 15390561 (Version 1)
Quarter: 2018Q3

REPORT INFORMATION
  Report Type: Spontaneous
  Country: US (occurrence: US)
  Receive Date: 20180917
  Receipt Date: 20180917
  Transmission Date: 20181010
  Serious: No
  Sender: FDA-Public Use
  Company Number: US-ALEMBIC PHARMACUETICALS LIMITED-2018SCAL000305

PATIENT

DRUGS (2)
  1. LAMOTRIGINE. [Suspect]
     Active Substance: LAMOTRIGINE
     Indication: PRODUCT USED FOR UNKNOWN INDICATION
     Dosage: UNK
     Route: 065
  2. LITHIUM CARBONATE. [Suspect]
     Active Substance: LITHIUM CARBONATE
     Indication: PRODUCT USED FOR UNKNOWN INDICATION
     Dosage: UNK
     Route: 065

REACTIONS (12)
  - Nightmare [Recovering/Resolving]
  - Insomnia [Recovering/Resolving]
  - Anxiety [Recovering/Resolving]
  - Anger [Recovering/Resolving]
  - Paranoia [Recovering/Resolving]
  - Obsessive thoughts [Recovering/Resolving]
  - Feeling abnormal [Recovering/Resolving]
  - Weight increased [Unknown]
  - Suspiciousness [Recovering/Resolving]
  - Irritability [Recovering/Resolving]
  - Panic attack [Recovered/Resolved]
  - Abnormal dreams [Recovering/Resolving]
